FAERS Safety Report 4883173-6 (Version None)
Quarter: 2006Q1

REPORT INFORMATION
  Report Type: 
  Country: None (occurrence: None)
  Receive Date: 20060117
  Receipt Date: 20060117
  Transmission Date: 20060701
  Serious: No
  Sender: FDA-Public Use
  Company Number: None

PATIENT
  Age: 26 Year
  Sex: Female
  Weight: 64.8644 kg

DRUGS (1)
  1. DEPO-PROVERA [Suspect]
     Indication: CONTRACEPTION
     Dosage: 150 MG.   EVERY 12 WEEKS   IM
     Route: 030
     Dates: start: 19980512, end: 20051007

REACTIONS (10)
  - ABDOMINAL DISTENSION [None]
  - BONE DISORDER [None]
  - EMOTIONAL DISORDER [None]
  - HOT FLUSH [None]
  - HYPERHIDROSIS [None]
  - HYPOTRICHOSIS [None]
  - LACTATION DISORDER [None]
  - MUSCLE SPASMS [None]
  - VAGINAL HAEMORRHAGE [None]
  - WEIGHT INCREASED [None]
